FAERS Safety Report 4529140-3 (Version None)
Quarter: 2004Q4

REPORT INFORMATION
  Report Type: 
  Country: None (occurrence: None)
  Receive Date: 20041214
  Receipt Date: 20041201
  Transmission Date: 20050328
  Serious: Yes (Hospitalization)
  Sender: FDA-Public Use
  Company Number: 2004103104

PATIENT
  Age: 60 Year
  Sex: Male
  Weight: 93 kg

DRUGS (5)
  1. XALATAN [Suspect]
     Indication: GLAUCOMA
     Dosage: 1 DOSE FORM (INTERVAL:  EVERY DAY), OPHTHALMIC
     Route: 047
     Dates: start: 20040903, end: 20040908
  2. OMEPRAZOLE [Suspect]
     Indication: GASTRIC ULCER
     Dosage: 20 MG (20 MG, INTERVAL:  EVERY DAY), ORAL
     Route: 048
     Dates: start: 20040831, end: 20040907
  3. OMEPRAZOLE [Suspect]
     Indication: HAEMORRHAGE
     Dosage: 20 MG (20 MG, INTERVAL:  EVERY DAY), ORAL
     Route: 048
     Dates: start: 20040831, end: 20040907
  4. ZOPICLONE (ZOPICLONE) [Suspect]
     Indication: SLEEP DISORDER
     Dosage: 7.5 MG (7.5 MG, INTERVAL:  EVERY DAY) ORAL
     Route: 048
     Dates: start: 20040903, end: 20040907
  5. FLUINDIONE (FLUINDIONE) [Suspect]
     Indication: PULMONARY EMBOLISM
     Dosage: 20 MG (20 MG, INTERVAL:  EVERY DAY), ORAL
     Route: 048
     Dates: start: 20040901, end: 20040907

REACTIONS (11)
  - GLAUCOMA [None]
  - LARYNGITIS [None]
  - MALAISE [None]
  - PAINFUL RESPIRATION [None]
  - PALLOR [None]
  - PULMONARY EMBOLISM [None]
  - RASH GENERALISED [None]
  - RASH PRURITIC [None]
  - SLEEP DISORDER [None]
  - TACHYCARDIA [None]
  - TREMOR [None]
